FAERS Safety Report 6595966-8 (Version None)
Quarter: 2010Q1

REPORT INFORMATION
  Report Type: 
  Country: None (occurrence: None)
  Receive Date: 20100223
  Receipt Date: 20100210
  Transmission Date: 20100710
  Serious: Yes (Hospitalization)
  Sender: FDA-Public Use
  Company Number: PHHY2010MX07682

PATIENT
  Age: 79 Year
  Sex: Female

DRUGS (7)
  1. DIOVAN [Suspect]
     Indication: HYPERTENSION
     Dosage: 1 AND HALF  TABLET (160 MG) DAILY
     Route: 048
     Dates: start: 20050201
  2. CEPHALEXIN [Concomitant]
  3. TAILES [Concomitant]
  4. CIPLOT [Concomitant]
  5. OMETRAZOL [Concomitant]
  6. FUROSEMIDE [Concomitant]
  7. NIFEDIPINE [Concomitant]

REACTIONS (2)
  - BREAST CANCER [None]
  - BREAST OPERATION [None]
